FAERS Safety Report 5251398-6 (Version None)
Quarter: 2007Q1

REPORT INFORMATION
  Report Type: 
  Country: None (occurrence: None)
  Receive Date: 20070228
  Receipt Date: 20060504
  Transmission Date: 20070707
  Serious: No
  Sender: FDA-Public Use
  Company Number: US-GLAXOSMITHKLINE-A0604411A

PATIENT
  Age: 17 Year
  Sex: Male

DRUGS (3)
  1. LAMICTAL [Suspect]
     Indication: BIPOLAR DISORDER
     Dosage: 25MG SINGLE DOSE
     Route: 048
     Dates: start: 20060502, end: 20060502
  2. RISPERDAL [Concomitant]
  3. PROZAC [Concomitant]

REACTIONS (8)
  - CHEST PAIN [None]
  - CONFUSIONAL STATE [None]
  - EMOTIONAL DISORDER [None]
  - FEAR [None]
  - INSOMNIA [None]
  - PSYCHOMOTOR HYPERACTIVITY [None]
  - SPEECH DISORDER [None]
  - THINKING ABNORMAL [None]
